FAERS Safety Report 21201763 (Version 2)
Quarter: 2022Q3

REPORT INFORMATION
  Report Type: Report from Study
  Country: DE (occurrence: DE)
  Receive Date: 20220811
  Receipt Date: 20220817
  Transmission Date: 20221027
  Serious: Yes (Hospitalization)
  Sender: FDA-Public Use
  Company Number: DE-NOVARTISPH-NVSC2022DE170256

PATIENT
  Sex: Female

DRUGS (12)
  1. UNSPECIFIED INGREDIENT [Suspect]
     Active Substance: UNSPECIFIED INGREDIENT
     Indication: Product used for unknown indication
     Dosage: UNK
     Route: 065
  2. LEFLUNOMIDE [Suspect]
     Active Substance: LEFLUNOMIDE
     Indication: Rheumatoid arthritis
     Dosage: 15 MG
     Route: 065
     Dates: start: 20191112
  3. LEFLUNOMIDE [Suspect]
     Active Substance: LEFLUNOMIDE
     Dosage: 15 MG
     Route: 065
     Dates: start: 20200310
  4. LEFLUNOMIDE [Suspect]
     Active Substance: LEFLUNOMIDE
     Dosage: 15 MG
     Route: 065
     Dates: start: 20200515
  5. LEFLUNOMIDE [Suspect]
     Active Substance: LEFLUNOMIDE
     Dosage: 15 MG
     Route: 065
     Dates: start: 20201110
  6. LEFLUNOMIDE [Suspect]
     Active Substance: LEFLUNOMIDE
     Dosage: 15 MG
     Route: 065
     Dates: start: 20210506
  7. LEFLUNOMIDE [Suspect]
     Active Substance: LEFLUNOMIDE
     Dosage: 15 MG
     Route: 065
     Dates: start: 20211124
  8. METHOTREXATE [Suspect]
     Active Substance: METHOTREXATE
     Indication: Rheumatoid arthritis
     Dosage: 22.5 MG
     Route: 065
     Dates: start: 20191112
  9. METHOTREXATE [Suspect]
     Active Substance: METHOTREXATE
     Dosage: 22.5 MG
     Route: 065
     Dates: start: 20200310
  10. METHOTREXATE [Suspect]
     Active Substance: METHOTREXATE
     Dosage: 22.5 MG
     Route: 065
     Dates: start: 20200515
  11. METHOTREXATE [Suspect]
     Active Substance: METHOTREXATE
     Dosage: 15 MG
     Route: 065
     Dates: start: 20201110
  12. METHOTREXATE [Suspect]
     Active Substance: METHOTREXATE
     Dosage: 15 MG
     Route: 065
     Dates: start: 20210506

REACTIONS (2)
  - Myocardial infarction [Recovered/Resolved]
  - Coronary artery disease [Unknown]

NARRATIVE: CASE EVENT DATE: 20201208
